FAERS Safety Report 6219631-1 (Version None)
Quarter: 2009Q2

REPORT INFORMATION
  Report Type: 
  Country: None (occurrence: None)
  Receive Date: 20090609
  Receipt Date: 20090528
  Transmission Date: 20091009
  Serious: Yes (Hospitalization, Other)
  Sender: FDA-Public Use
  Company Number: JP-PFIZER INC-2009199868

PATIENT
  Age: 48 Year

DRUGS (1)
  1. AZULFIDINE [Suspect]

REACTIONS (2)
  - DISSEMINATED INTRAVASCULAR COAGULATION [None]
  - THROMBOCYTOPENIA [None]
